FAERS Safety Report 12648981 (Version 1)
Quarter: 2016Q3

REPORT INFORMATION
  Report Type: Report from Study
  Country: BR (occurrence: BR)
  Receive Date: 20160812
  Receipt Date: 20160812
  Transmission Date: 20161109
  Serious: Yes (Other)
  Sender: FDA-Public Use
  Company Number: BR-JNJFOC-20160806090

PATIENT
  Age: 33 Year
  Sex: Male

DRUGS (2)
  1. REMICADE [Suspect]
     Active Substance: INFLIXIMAB
     Indication: CROHN^S DISEASE
     Route: 042
     Dates: start: 201603
  2. AZATHIOPRINE. [Concomitant]
     Active Substance: AZATHIOPRINE

REACTIONS (7)
  - Off label use [Unknown]
  - Purulence [Unknown]
  - Asthenia [Unknown]
  - Abdominal pain [Unknown]
  - Surgery [Unknown]
  - Product use issue [Unknown]
  - Diarrhoea [Unknown]

NARRATIVE: CASE EVENT DATE: 201603
